FAERS Safety Report 6681077-X (Version None)
Quarter: 2010Q2

REPORT INFORMATION
  Report Type: 
  Country: None (occurrence: None)
  Receive Date: 20100414
  Receipt Date: 20100402
  Transmission Date: 20101027
  Serious: Yes (Death, Other)
  Sender: FDA-Public Use
  Company Number: JP-ROCHE-681097

PATIENT
  Sex: Male
  Weight: 72 kg

DRUGS (5)
  1. AVASTIN [Suspect]
     Indication: LUNG ADENOCARCINOMA
     Route: 041
     Dates: start: 20100108, end: 20100108
  2. TARCEVA [Suspect]
     Indication: LUNG ADENOCARCINOMA
     Route: 048
     Dates: start: 20091217, end: 20091228
  3. ALIMTA [Suspect]
     Indication: LUNG ADENOCARCINOMA
     Dosage: DRUG: ALIMTA(PEMETREXED SODIUM HYDRATE)
     Route: 041
     Dates: start: 20100108, end: 20100108
  4. SOLU-MEDROL [Suspect]
     Indication: INTERSTITIAL LUNG DISEASE
     Dosage: DRUG: SOLU_MEDROL(METHYLPREDNISOLONE SODIUM SUCCINATE)
     Route: 042
     Dates: start: 20091228, end: 20100127
  5. SOLU-MEDROL [Suspect]
     Dosage: DRUG: SOLU_MEDROL(METHYLPREDNISOLONE SODIUM SUCCINATE)
     Route: 042
     Dates: start: 20100115, end: 20100123

REACTIONS (3)
  - INTERSTITIAL LUNG DISEASE [None]
  - PNEUMOCYSTIS JIROVECI PNEUMONIA [None]
  - THROMBOCYTOPENIA [None]
